FAERS Safety Report 12316461 (Version 1)
Quarter: 2016Q2

REPORT INFORMATION
  Report Type: Spontaneous
  Country: US (occurrence: US)
  Receive Date: 20160429
  Receipt Date: 20160429
  Transmission Date: 20160815
  Serious: Yes (Other)
  Sender: FDA-Public Use
  Company Number: US-JNJCP-30000333744

PATIENT
  Sex: Female

DRUGS (1)
  1. NEUTROGENA PRODUCTS [Suspect]
     Active Substance: UNSPECIFIED INGREDIENT
     Indication: PRODUCT USED FOR UNKNOWN INDICATION
     Route: 061

REACTIONS (4)
  - Poisoning [Unknown]
  - Eye pruritus [Unknown]
  - Application site erythema [Unknown]
  - Application site swelling [Unknown]
